FAERS Safety Report 18313119 (Version 1)
Quarter: 2020Q3

REPORT INFORMATION
  Report Type: Spontaneous
  Country: US (occurrence: US)
  Receive Date: 20200925
  Receipt Date: 20200925
  Transmission Date: 20201103
  Serious: Yes (Hospitalization, Other)
  Sender: FDA-Public Use
  Company Number: US-PFIZER INC-2020369065

PATIENT
  Age: 72 Year
  Sex: Female
  Weight: 102 kg

DRUGS (1)
  1. LYRICA [Suspect]
     Active Substance: PREGABALIN
     Indication: FIBROMYALGIA
     Dosage: 200 MG, 3X/DAY, (2, 100 MG THREE TIMES A DAY BY MOUTH)
     Route: 048

REACTIONS (3)
  - Expired product administered [Unknown]
  - Pneumonia [Recovered/Resolved]
  - Off label use [Unknown]
